FAERS Safety Report 6763199-8 (Version None)
Quarter: 2010Q2

REPORT INFORMATION
  Report Type: 
  Country: None (occurrence: None)
  Receive Date: 20100609
  Receipt Date: 20090630
  Transmission Date: 20101027
  Serious: Yes (Hospitalization)
  Sender: FDA-Public Use
  Company Number: US-GENENTECH-284793

PATIENT
  Sex: Female

DRUGS (6)
  1. RITUXAN [Suspect]
     Indication: NEUROMYELITIS OPTICA
     Dosage: UNK
     Dates: start: 20081101
  2. GABAPENTIN [Concomitant]
     Indication: DRUG USE FOR UNKNOWN INDICATION
  3. RISPERDAL [Concomitant]
     Indication: DRUG USE FOR UNKNOWN INDICATION
  4. LYRICA [Concomitant]
     Indication: DRUG USE FOR UNKNOWN INDICATION
  5. STEROIDS (UNK INGREDIENTS) [Concomitant]
     Indication: DRUG USE FOR UNKNOWN INDICATION
     Dosage: 80 MG, QOD
  6. STEROIDS (UNK INGREDIENTS) [Concomitant]
     Dosage: 50 MG, QOD

REACTIONS (1)
  - PSYCHOTIC DISORDER [None]
